FAERS Safety Report 9018644 (Version 1)
Quarter: 2013Q1

REPORT INFORMATION
  Report Type: Spontaneous
  Country: CO (occurrence: CO)
  Receive Date: 20130118
  Receipt Date: 20130118
  Transmission Date: 20140127
  Serious: Yes (Other)
  Sender: FDA-Public Use
  Company Number: CO-PFIZER INC-2013020410

PATIENT
  Age: 62 Year
  Sex: Female

DRUGS (4)
  1. METHOTREXATE [Suspect]
     Indication: RHEUMATOID ARTHRITIS
     Dosage: 4 TABLETS OF 2.5MG, EACH 8 DAYS
     Route: 048
     Dates: start: 2003
  2. CLINDAMYCIN HCL [Suspect]
     Indication: BREAST ABSCESS
     Dosage: EACH 8 HOURS
     Route: 065
     Dates: start: 20130107
  3. DICLOXACILLIN [Suspect]
     Indication: BREAST ABSCESS
     Dosage: 500 MG, UNK
     Route: 065
     Dates: start: 20121115, end: 20121125
  4. CEPHALEXIN [Suspect]
     Indication: BREAST ABSCESS
     Dosage: UNK
     Route: 065
     Dates: start: 20121207, end: 20121217

REACTIONS (5)
  - Breast abscess [Not Recovered/Not Resolved]
  - Drug ineffective [Unknown]
  - Dyspepsia [Not Recovered/Not Resolved]
  - Nausea [Not Recovered/Not Resolved]
  - Diarrhoea [Not Recovered/Not Resolved]
